FAERS Safety Report 6052230-3 (Version None)
Quarter: 2009Q1

REPORT INFORMATION
  Report Type: 
  Country: None (occurrence: None)
  Receive Date: 20090121
  Receipt Date: 20081229
  Transmission Date: 20090719
  Serious: Yes (Death, Other)
  Sender: FDA-Public Use
  Company Number: 135443

PATIENT

DRUGS (2)
  1. MIDAZOLAM INJECTION BP (MIDAZOLAM HYDROCHLORIDE) [Suspect]
  2. (ALCOHOL /00002101/) [Concomitant]

REACTIONS (2)
  - ALCOHOL USE [None]
  - ARTERIOSCLEROSIS CORONARY ARTERY [None]
